FAERS Safety Report 4303455-6 (Version None)
Quarter: 2004Q1

REPORT INFORMATION
  Report Type: 
  Country: None (occurrence: None)
  Receive Date: 20040223
  Receipt Date: 20040212
  Transmission Date: 20041129
  Serious: Yes (Hospitalization)
  Sender: FDA-Public Use
  Company Number: 2004-02-0708

PATIENT
  Age: 52 Year
  Sex: Male
  Weight: 67 kg

DRUGS (2)
  1. PEG-INTRON [Suspect]
     Indication: HEPATITIS C
     Dosage: SUBCUTANEOUS
     Route: 058
     Dates: start: 20030310, end: 20031201
  2. REBETOL [Suspect]
     Indication: HEPATITIS C
     Dosage: ORAL
     Route: 048
     Dates: start: 20030310, end: 20031201

REACTIONS (8)
  - BUNDLE BRANCH BLOCK RIGHT [None]
  - CHEST PAIN [None]
  - CHEST X-RAY ABNORMAL [None]
  - DYSPNOEA [None]
  - ECHOGRAPHY ABNORMAL [None]
  - EMPHYSEMA [None]
  - PLATELET COUNT DECREASED [None]
  - PULMONARY HYPERTENSION [None]
